FAERS Safety Report 13031046 (Version 2)
Quarter: 2019Q2

REPORT INFORMATION
  Report Type: Spontaneous
  Country: US (occurrence: US)
  Receive Date: 20161215
  Receipt Date: 20190403
  Transmission Date: 20190711
  Serious: No
  Sender: FDA-Public Use
  Company Number: US-BAYER-2016-231540

PATIENT
  Age: 61 Year
  Sex: Female

DRUGS (1)
  1. MENOSTAR [Suspect]
     Active Substance: ESTRADIOL
     Dosage: UNK MG, UNK
     Route: 062

REACTIONS (3)
  - Application site pruritus [None]
  - Application site rash [None]
  - Product quality issue [None]
